FAERS Safety Report 5678678-4 (Version None)
Quarter: 2008Q1

REPORT INFORMATION
  Report Type: 
  Country: None (occurrence: None)
  Receive Date: 20080324
  Receipt Date: 20080314
  Transmission Date: 20080703
  Serious: No
  Sender: FDA-Public Use
  Company Number: APP200800203

PATIENT
  Age: 50 Year
  Sex: Male
  Weight: 124.8 kg

DRUGS (2)
  1. HEPARIN SODIUM INJECTION [Suspect]
     Indication: HAEMODIALYSIS
     Dosage: 1500 USP UNITS, INTRAVENOUS BOLUS 1000 USP UNITS (PER HOUR), INTRAVENOUS
     Route: 040
     Dates: start: 20080206, end: 20080206
  2. XENIUM 210 SYNTH HF DIALYZERSYNTHETIC DIALYZER HEMODIALYSIS [Suspect]
     Indication: HAEMODIALYSIS
     Dates: start: 20080206

REACTIONS (4)
  - BLOOD GLUCOSE INCREASED [None]
  - HEADACHE [None]
  - NAUSEA [None]
  - PALLOR [None]
